FAERS Safety Report 18774620 (Version 5)
Quarter: 2021Q3

REPORT INFORMATION
  Report Type: Report from Study
  Country: JP (occurrence: JP)
  Receive Date: 20210122
  Receipt Date: 20210924
  Transmission Date: 20211014
  Serious: Yes (Hospitalization)
  Sender: FDA-Public Use
  Company Number: JP-PFIZER INC-2019325637

PATIENT
  Age: 77 Year
  Sex: Female

DRUGS (15)
  1. LIMAPROST ALFADEX [Suspect]
     Active Substance: LIMAPROST
     Dosage: 5 UG, 3X/DAY
     Route: 048
  2. SHAKANZOTO [Suspect]
     Active Substance: CANNABIS SATIVA SEED\HERBALS
     Dosage: 2.5 G, 1X/DAY
     Route: 048
  3. LOXOPROFEN SODIUM [Suspect]
     Active Substance: LOXOPROFEN SODIUM
     Dosage: 60 MG, 1X/DAY
     Route: 048
     Dates: end: 20190617
  4. AZOSEMIDE [Suspect]
     Active Substance: AZOSEMIDE
     Dosage: 30 MG, 1X/DAY
     Route: 048
     Dates: end: 20190617
  5. TRAZENTA [Suspect]
     Active Substance: LINAGLIPTIN
     Dosage: 5 MG, 1X/DAY
     Route: 048
  6. AMLODIPINE BESILATE [Suspect]
     Active Substance: AMLODIPINE BESYLATE
     Dosage: 5 MG, 1X/DAY
     Route: 048
  7. PREDNISOLONE. [Suspect]
     Active Substance: PREDNISOLONE
     Dosage: 3 MG, 1X/DAY
     Route: 048
  8. VYNDAQEL [Suspect]
     Active Substance: TAFAMIDIS MEGLUMINE
     Indication: HEREDITARY NEUROPATHIC AMYLOIDOSIS
     Dosage: 20 MG, 1X/DAY
     Route: 048
     Dates: start: 20190422, end: 20190624
  9. METFORMIN HYDROCHLORIDE MT PFIZER [Suspect]
     Active Substance: METFORMIN HYDROCHLORIDE
     Dosage: 500 MG, 2X/DAY
     Route: 048
  10. LANSOPRAZOLE. [Suspect]
     Active Substance: LANSOPRAZOLE
     Dosage: 15 MG, 1X/DAY
     Route: 048
  11. ASPARA POTASSIUM [Suspect]
     Active Substance: POTASSIUM ASPARTATE
     Dosage: 600 MG, 2X/DAY
     Route: 048
  12. EDIROL [Suspect]
     Active Substance: ELDECALCITOL
     Dosage: 0.75 UG, 1X/DAY
     Route: 048
  13. BROTIZOLAM [Suspect]
     Active Substance: BROTIZOLAM
     Dosage: 0.25 MG, 1X/DAY
     Route: 048
  14. PIOGLITAZONE HYDROCHLORIDE. [Suspect]
     Active Substance: PIOGLITAZONE HYDROCHLORIDE
     Dosage: 15 MG, 1X/DAY
     Route: 048
     Dates: end: 20190617
  15. LIXIANA OD [Suspect]
     Active Substance: EDOXABAN TOSYLATE
     Dosage: 30 MG, 1X/DAY
     Route: 048

REACTIONS (1)
  - Cardiac failure [Recovering/Resolving]

NARRATIVE: CASE EVENT DATE: 20190617
